FAERS Safety Report 8277215-8 (Version None)
Quarter: 2012Q2

REPORT INFORMATION
  Report Type: 
  Country: None (occurrence: None)
  Receive Date: 20120412
  Receipt Date: 20120402
  Transmission Date: 20120825
  Serious: Yes (Death, Hospitalization)
  Sender: FDA-Public Use
  Company Number: US-GLAXOSMITHKLINE-A0933058A

PATIENT
  Age: 47 Year
  Sex: Male

DRUGS (1)
  1. AVANDIA [Suspect]
     Indication: TYPE 2 DIABETES MELLITUS
     Dosage: 4MG UNKNOWN
     Route: 048
     Dates: start: 20040101, end: 20091028

REACTIONS (6)
  - DYSPNOEA [None]
  - RENAL IMPAIRMENT [None]
  - MYOCARDIAL INFARCTION [None]
  - CARDIAC DEATH [None]
  - CHEST PAIN [None]
  - CARDIAC FAILURE CONGESTIVE [None]
